FAERS Safety Report 13230708 (Version 1)
Quarter: 2017Q1

REPORT INFORMATION
  Report Type: Spontaneous
  Country: US (occurrence: US)
  Receive Date: 20170214
  Receipt Date: 20170214
  Transmission Date: 20170428
  Serious: No
  Sender: FDA-Public Use
  Company Number: None

PATIENT
  Age: 62 Year
  Sex: Female
  Weight: 63 kg

DRUGS (5)
  1. IMITREX [Concomitant]
     Active Substance: SUMATRIPTAN SUCCINATE
  2. CLONAPIN [Concomitant]
     Active Substance: CLONAZEPAM
  3. ALENE [Concomitant]
     Active Substance: EPIMESTROL
  4. ZYRTEC-D [Concomitant]
     Active Substance: CETIRIZINE HYDROCHLORIDE\PSEUDOEPHEDRINE HYDROCHLORIDE
  5. FLUCONAZOLE TAB, 150 MG, FL15160 [Suspect]
     Active Substance: FLUCONAZOLE
     Indication: VULVOVAGINAL MYCOTIC INFECTION
     Dosage: ?          QUANTITY:1 TABLET(S);?
     Route: 048
     Dates: start: 20161229, end: 20161229

REACTIONS (4)
  - Emotional disorder [None]
  - Genital burning sensation [None]
  - Genital pain [None]
  - Blister [None]

NARRATIVE: CASE EVENT DATE: 20161229
